FAERS Safety Report 6876183-0 (Version None)
Quarter: 2010Q3

REPORT INFORMATION
  Report Type: 
  Country: None (occurrence: None)
  Receive Date: 20100727
  Receipt Date: 20100708
  Transmission Date: 20110219
  Serious: Yes (Hospitalization)
  Sender: FDA-Public Use
  Company Number: A0866610A

PATIENT
  Age: 53 Year
  Sex: Male

DRUGS (7)
  1. AVANDIA [Suspect]
     Dosage: 4MG PER DAY
     Route: 048
  2. LISINOPRIL [Concomitant]
  3. GLUCOTROL XL [Concomitant]
  4. LOPID [Concomitant]
  5. TOPROL-XL [Concomitant]
  6. CELEBREX [Concomitant]
     Dates: start: 20040201
  7. PAXIL [Concomitant]

REACTIONS (3)
  - ARTERIOSCLEROSIS CORONARY ARTERY [None]
  - CARDIAC FAILURE CONGESTIVE [None]
  - MYOCARDIAL INFARCTION [None]
